FAERS Safety Report 18387105 (Version 1)
Quarter: 2020Q4

REPORT INFORMATION
  Report Type: Spontaneous
  Country: US (occurrence: US)
  Receive Date: 20201014
  Receipt Date: 20201014
  Transmission Date: 20210114
  Serious: Yes (Hospitalization)
  Sender: FDA-Public Use
  Company Number: None

PATIENT
  Sex: Male
  Weight: 81.9 kg

DRUGS (10)
  1. NYSTATIN. [Concomitant]
     Active Substance: NYSTATIN
  2. PROCHLORPERAZINE. [Concomitant]
     Active Substance: PROCHLORPERAZINE
  3. CISPLATIN. [Suspect]
     Active Substance: CISPLATIN
     Dates: end: 20200923
  4. LIDOCAINE VISCOUS DIPHENHYDRAMLNE (BENADRYL) [Concomitant]
  5. FLUCONAZOLE. [Concomitant]
     Active Substance: FLUCONAZOLE
  6. FENTANYL. [Concomitant]
     Active Substance: FENTANYL
  7. LORAZEPAM. [Concomitant]
     Active Substance: LORAZEPAM
  8. ATROVASTATIN [Concomitant]
     Active Substance: ATORVASTATIN CALCIUM
  9. FLUOEXTINE [Concomitant]
  10. OXYCODONE [Concomitant]
     Active Substance: OXYCODONE

REACTIONS (4)
  - Abnormal loss of weight [None]
  - Dysgeusia [None]
  - Dysphagia [None]
  - Malnutrition [None]

NARRATIVE: CASE EVENT DATE: 20201005
